FAERS Safety Report 5595563-7 (Version None)
Quarter: 2008Q1

REPORT INFORMATION
  Report Type: 
  Country: None (occurrence: None)
  Receive Date: 20080116
  Receipt Date: 20080116
  Transmission Date: 20080703
  Serious: Yes (Other)
  Sender: FDA-Public Use
  Company Number: None

PATIENT
  Age: 65 Year
  Sex: Female
  Weight: 66.2252 kg

DRUGS (1)
  1. RITUXAN [Suspect]
     Indication: NON-HODGKIN'S LYMPHOMA
     Dosage: 600MG EVERY 8 WEEKS IV
     Route: 042
     Dates: start: 20040223, end: 20071023

REACTIONS (6)
  - CATARACT OPERATION [None]
  - CHORIORETINITIS [None]
  - IRIDOCYCLITIS [None]
  - UVEITIS [None]
  - VIRAL INFECTION [None]
  - VISUAL ACUITY REDUCED [None]
